FAERS Safety Report 6136046 (Version 2)
Quarter: 2015Q4

REPORT INFORMATION
  Report Type: Spontaneous
  Country: BR (occurrence: BR)
  Receive Date: 20060926
  Receipt Date: 20151020
  Transmission Date: 20160305
  Serious: Yes (Other)
  Sender: FDA-Public Use
  Company Number: BR-BRISTOL-MYERS SQUIBB COMPANY-13507934

PATIENT
  Age: 17 Year
  Sex: Female

DRUGS (1)
  1. COUMADIN [Suspect]
     Active Substance: WARFARIN SODIUM
     Indication: PRODUCT USED FOR UNKNOWN INDICATION
     Dosage: 1 DF, UNK
     Route: 065
     Dates: start: 20060701

REACTIONS (4)
  - Intentional overdose [Unknown]
  - Haematuria [Unknown]
  - Pregnancy [Unknown]
  - Suicide attempt [Unknown]

NARRATIVE: CASE EVENT DATE: 2006
